FAERS Safety Report 26057483 (Version 1)
Quarter: 2025Q4

REPORT INFORMATION
  Report Type: Spontaneous
  Country: EU (occurrence: EU)
  Receive Date: 20251118
  Receipt Date: 20251118
  Transmission Date: 20260117
  Serious: Yes (Other)
  Sender: DR REDDYS
  Company Number: EU-RDY-ROU/2025/11/017412

PATIENT
  Age: 25 Year
  Sex: Female

DRUGS (2)
  1. CYCLOPHOSPHAMIDE [Suspect]
     Active Substance: CYCLOPHOSPHAMIDE
     Indication: HER2 low breast cancer
     Dosage: FOUR CYCLES
  2. EPIRUBICIN [Suspect]
     Active Substance: EPIRUBICIN
     Indication: HER2 low breast cancer
     Dosage: FOUR CYCLES

REACTIONS (1)
  - Exposure during pregnancy [Unknown]
